FAERS Safety Report 6759224-0 (Version None)
Quarter: 2010Q2

REPORT INFORMATION
  Report Type: 
  Country: None (occurrence: None)
  Receive Date: 20100607
  Receipt Date: 20100525
  Transmission Date: 20101027
  Serious: Yes (Other)
  Sender: FDA-Public Use
  Company Number: JP-PFIZER INC-2010066798

PATIENT
  Age: 42 Year
  Sex: Female

DRUGS (6)
  1. ZOLOFT [Suspect]
     Indication: PANIC DISORDER
     Dosage: 25 MG/DAY
     Dates: start: 20090911
  2. ZOLOFT [Suspect]
     Dosage: 50 MG/DAY
     Dates: start: 20091009
  3. ZOLOFT [Suspect]
     Dosage: 75 MG/DAY
     Dates: start: 20091105
  4. ZOLOFT [Suspect]
     Dosage: 100 MG/DAY
     Dates: start: 20091204
  5. CONSTAN [Concomitant]
     Indication: PANIC DISORDER
     Dosage: 0.8 MG/DAY
     Dates: start: 20090911, end: 20100509
  6. PANTETHINE [Concomitant]
     Dosage: UNK
     Dates: start: 20100108, end: 20100415

REACTIONS (8)
  - ALANINE AMINOTRANSFERASE INCREASED [None]
  - ANAEMIA [None]
  - ASPARTATE AMINOTRANSFERASE INCREASED [None]
  - BLOOD ALKALINE PHOSPHATASE INCREASED [None]
  - GAMMA-GLUTAMYLTRANSFERASE INCREASED [None]
  - HEPATIC FUNCTION ABNORMAL [None]
  - LOSS OF CONSCIOUSNESS [None]
  - METRORRHAGIA [None]
